FAERS Safety Report 25582455 (Version 1)
Quarter: 2025Q3

REPORT INFORMATION
  Report Type: Spontaneous
  Country: US (occurrence: US)
  Receive Date: 20250720
  Receipt Date: 20250720
  Transmission Date: 20251020
  Serious: No
  Sender: ALEXION PHARMACEUTICALS
  Company Number: US-AstraZeneca-CH-00911051A

PATIENT
  Sex: Female

DRUGS (2)
  1. STRENSIQ [Suspect]
     Active Substance: ASFOTASE ALFA
     Indication: Hypophosphatasia
     Dosage: 200 MILLIGRAM, TWO INJECTIONS PER DAY,TIW
     Route: 065
  2. STRENSIQ [Suspect]
     Active Substance: ASFOTASE ALFA
     Dosage: 200 MILLIGRAM, BID

REACTIONS (4)
  - Fatigue [Recovered/Resolved]
  - Brain fog [Recovered/Resolved]
  - Feeling abnormal [Recovered/Resolved]
  - Vision blurred [Not Recovered/Not Resolved]
